FAERS Safety Report 5045861-0 (Version None)
Quarter: 2006Q3

REPORT INFORMATION
  Report Type: 
  Country: None (occurrence: None)
  Receive Date: 20060710
  Receipt Date: 20060628
  Transmission Date: 20061208
  Serious: Yes (Other)
  Sender: FDA-Public Use
  Company Number: 2006AC01231

PATIENT
  Age: 13 Year
  Sex: Male

DRUGS (6)
  1. SEROQUEL [Suspect]
  2. SEROQUEL [Suspect]
     Route: 048
  3. SEROQUEL [Suspect]
     Route: 048
  4. DIAZEPAM [Concomitant]
  5. CHLOTIAPINE [Concomitant]
  6. FLUANXOL [Concomitant]

REACTIONS (1)
  - NEUTROPENIA [None]
